FAERS Safety Report 5120632-5 (Version None)
Quarter: 2006Q4

REPORT INFORMATION
  Report Type: 
  Country: None (occurrence: None)
  Receive Date: 20061002
  Receipt Date: 20060915
  Transmission Date: 20070319
  Serious: Yes (Hospitalization)
  Sender: FDA-Public Use
  Company Number: CA200609004334

PATIENT
  Age: 62 Year
  Sex: Female

DRUGS (15)
  1. FORTEO [Suspect]
     Indication: OSTEOPOROSIS
     Dosage: 20 UG, DAILY (1/D),
     Dates: start: 20050914
  2. FORTEO [Concomitant]
  3. LOSEC (OMEPRAZOLE) [Concomitant]
  4. CRESTOR [Concomitant]
  5. PREDNISONE TAB [Concomitant]
  6. ARAVA [Concomitant]
  7. MOBIC [Concomitant]
  8. BISOPROLOL FUMARATE [Concomitant]
  9. AVAPRO [Concomitant]
  10. NOVOHYDRAZIDE (HYDROCHLOROTHIAZIDE) [Concomitant]
  11. HYDROMORPHONE HCL [Concomitant]
  12. DURAGESIC-100 [Concomitant]
  13. CYANOCOBALAMIN [Concomitant]
  14. CALCIUM (CALCIUM) [Concomitant]
  15. VITAMIN D [Concomitant]

REACTIONS (2)
  - ABDOMINAL HERNIA [None]
  - CHILLS [None]
